FAERS Safety Report 9522986 (Version 1)
Quarter: 2013Q1

REPORT INFORMATION
  Report Type: Spontaneous
  Country: US (occurrence: None)
  Receive Date: 20130305
  Receipt Date: 20130305
  Transmission Date: 20140127
  Serious: Yes (Hospitalization, Other)
  Sender: FDA-Public Use
  Company Number: 163-21880-12031890

PATIENT
  Age: 82 Year
  Sex: Male

DRUGS (2)
  1. REVLIMID [Suspect]
     Indication: PLASMA CELL MYELOMA
     Dosage: QD X 3 WEEKS EACH MONTH
     Route: 048
     Dates: start: 20120216
  2. BLOOD TRANSFUSION (BLOOD AND RELATED PRODUCTS) [Concomitant]

REACTIONS (4)
  - Bacterial infection [None]
  - Anaemia [None]
  - Diarrhoea [None]
  - Dehydration [None]
